FAERS Safety Report 9186867 (Version 1)
Quarter: 2013Q1

REPORT INFORMATION
  Report Type: Spontaneous
  Country: US (occurrence: US)
  Receive Date: 20130325
  Receipt Date: 20130325
  Transmission Date: 20140127
  Serious: Yes (Other)
  Sender: FDA-Public Use
  Company Number: US-ROCHE-1204736

PATIENT
  Sex: Male

DRUGS (1)
  1. XOLAIR [Suspect]
     Indication: PRODUCT USED FOR UNKNOWN INDICATION
     Route: 065
     Dates: start: 20100527, end: 20121204

REACTIONS (5)
  - Contusion [Unknown]
  - Arthralgia [Unknown]
  - Tendon pain [Unknown]
  - Injection site bruising [Unknown]
  - Tendon rupture [Recovering/Resolving]
